FAERS Safety Report 4898766-X (Version None)
Quarter: 2006Q1

REPORT INFORMATION
  Report Type: 
  Country: None (occurrence: None)
  Receive Date: 20060131
  Receipt Date: 20060118
  Transmission Date: 20060701
  Serious: Yes (Hospitalization, Other)
  Sender: FDA-Public Use
  Company Number: 2005PV006405

PATIENT
  Age: 59 Year
  Sex: Female
  Weight: 83.4619 kg

DRUGS (15)
  1. BYETTA [Suspect]
     Indication: DIABETES MELLITUS NON-INSULIN-DEPENDENT
     Dosage: SEE IMAGE
     Route: 058
     Dates: start: 20051101, end: 20050101
  2. BYETTA [Suspect]
     Indication: DIABETES MELLITUS NON-INSULIN-DEPENDENT
     Dosage: SEE IMAGE
     Route: 058
     Dates: start: 20051201, end: 20051201
  3. BYETTA [Suspect]
     Indication: DIABETES MELLITUS NON-INSULIN-DEPENDENT
     Dosage: SEE IMAGE
     Route: 058
     Dates: start: 20051201, end: 20051214
  4. AVANDAMET [Concomitant]
  5. GLIPIZIDE [Concomitant]
  6. AVALIDE [Concomitant]
  7. LIPITOR [Concomitant]
  8. ZETIA [Concomitant]
  9. PAXIL [Concomitant]
  10. IRON SULFATETHIAMIN COMPOUND TAB [Concomitant]
  11. MIRAPEX [Concomitant]
  12. VITAMIN B-12 [Concomitant]
  13. ACTONEL [Concomitant]
  14. OSCAL PLUS D [Concomitant]
  15. ECOTRIN [Concomitant]

REACTIONS (8)
  - ATELECTASIS [None]
  - DIARRHOEA [None]
  - DIZZINESS [None]
  - EARLY SATIETY [None]
  - INSPIRATORY CAPACITY ABNORMAL [None]
  - NEPHRITIS INTERSTITIAL [None]
  - RENAL FAILURE ACUTE [None]
  - RENAL TUBULAR NECROSIS [None]
